FAERS Safety Report 4616071-3 (Version None)
Quarter: 2005Q1

REPORT INFORMATION
  Report Type: 
  Country: None (occurrence: None)
  Receive Date: 20050321
  Receipt Date: 20050308
  Transmission Date: 20050727
  Serious: Yes (Disabling, Other)
  Sender: FDA-Public Use
  Company Number: 94-02-005

PATIENT
  Age: 44 Year
  Sex: Female

DRUGS (5)
  1. GARASONE [Suspect]
     Indication: EAR INFECTION
     Dosage: 3-4 DROPS QID OTIC
     Route: 001
     Dates: start: 19910717, end: 19910813
  2. CIPROFLOXACIN [Concomitant]
  3. TAVIST ORAL [Concomitant]
  4. SUPRAX [Concomitant]
  5. TRISULFAMINIC [Concomitant]

REACTIONS (30)
  - AGORAPHOBIA [None]
  - ANXIETY [None]
  - ANXIETY DISORDER [None]
  - BALANCE DISORDER [None]
  - CONDUCTIVE DEAFNESS [None]
  - COORDINATION ABNORMAL [None]
  - DEAFNESS BILATERAL [None]
  - DEPRESSION [None]
  - DIFFICULTY IN WALKING [None]
  - DIZZINESS [None]
  - DRUG INEFFECTIVE [None]
  - DRUG TOXICITY [None]
  - ELECTRONYSTAGMOGRAM ABNORMAL [None]
  - FALL [None]
  - FEAR [None]
  - FLASHBACK [None]
  - MENTAL DISORDER [None]
  - OSCILLOPSIA [None]
  - PANIC ATTACK [None]
  - PROCEDURAL COMPLICATION [None]
  - RENAL FAILURE CHRONIC [None]
  - RENAL TRANSPLANT [None]
  - THERAPY NON-RESPONDER [None]
  - TINNITUS [None]
  - TYMPANIC MEMBRANE PERFORATION [None]
  - VERTIGO [None]
  - VESTIBULAR DISORDER [None]
  - VESTIBULAR NEURONITIS [None]
  - WALKING AID USER [None]
  - WHEELCHAIR USER [None]
